FAERS Safety Report 6885753-5 (Version None)
Quarter: 2010Q3

REPORT INFORMATION
  Report Type: 
  Country: None (occurrence: None)
  Receive Date: 20100729
  Receipt Date: 20080530
  Transmission Date: 20110219
  Serious: No
  Sender: FDA-Public Use
  Company Number: US-PFIZER INC-2008046216

PATIENT
  Sex: Male

DRUGS (3)
  1. CELEBREX [Suspect]
     Dates: start: 20080529
  2. DOXYCYCLINE MONOHYDRATE [Concomitant]
  3. LEVAQUIN [Concomitant]
     Dates: start: 20080528

REACTIONS (2)
  - DIZZINESS [None]
  - PRESYNCOPE [None]
